FAERS Safety Report 15022285 (Version 1)
Quarter: 2018Q2

REPORT INFORMATION
  Report Type: Spontaneous
  Country: GB (occurrence: GB)
  Receive Date: 20180618
  Receipt Date: 20180618
  Transmission Date: 20180711
  Serious: Yes (Hospitalization, Other)
  Sender: FDA-Public Use
  Company Number: GB-IMPAX LABORATORIES, INC-2018-IPXL-02076

PATIENT
  Age: 76 Year
  Sex: Female

DRUGS (1)
  1. ALENDRONATE SODIUM IR [Suspect]
     Active Substance: ALENDRONATE SODIUM
     Indication: OSTEOPOROSIS
     Dosage: UNK, MORE THAN 5 YEARS
     Route: 065

REACTIONS (3)
  - Bone disorder [Unknown]
  - Femur fracture [Recovered/Resolved]
  - Fall [Unknown]
